FAERS Safety Report 10150673 (Version 3)
Quarter: 2014Q3

REPORT INFORMATION
  Report Type: Report from Study
  Country: SE (occurrence: SE)
  Receive Date: 20140502
  Receipt Date: 20140730
  Transmission Date: 20150326
  Serious: Yes (Other)
  Sender: FDA-Public Use
  Company Number: SE-CELGENEUS-150-C5013-14044452

PATIENT
  Age: 75 Year
  Sex: Female
  Weight: 86 kg

DRUGS (8)
  1. METOPROLOL [Concomitant]
     Active Substance: METOPROLOL
     Indication: HYPERTENSION
     Dosage: 50 MILLIGRAM
     Route: 048
     Dates: start: 20100420
  2. PARMIDRONSYRA [Concomitant]
     Indication: PROPHYLAXIS
     Route: 041
     Dates: start: 20100809
  3. DEXAMETHASONE. [Suspect]
     Active Substance: DEXAMETHASONE
     Indication: PLASMA CELL MYELOMA
     Route: 048
     Dates: start: 20100831, end: 20111124
  4. AMILORID [Concomitant]
     Indication: HYPERTENSION
     Dosage: 5/50
     Route: 048
     Dates: start: 20100420
  5. OXYCODONE [Concomitant]
     Active Substance: OXYCODONE
     Indication: PAIN
     Route: 048
     Dates: start: 20100723
  6. CC-5013 [Suspect]
     Active Substance: LENALIDOMIDE
     Indication: PLASMA CELL MYELOMA
     Dosage: 18.75 MILLIGRAM
     Route: 048
     Dates: start: 20100831, end: 20111124
  7. MUCOPOLYSACCHARIDE POLYSULFATE [Concomitant]
     Indication: THROMBOPHLEBITIS
     Dosage: 600 MILLIGRAM
     Route: 061
     Dates: start: 20111212
  8. PARACETAMOL [Concomitant]
     Active Substance: ACETAMINOPHEN
     Indication: PAIN
     Route: 048
     Dates: start: 20100817

REACTIONS (1)
  - Neuroendocrine carcinoma metastatic [Not Recovered/Not Resolved]

NARRATIVE: CASE EVENT DATE: 20140310
